FAERS Safety Report 24561579 (Version 1)
Quarter: 2024Q4

REPORT INFORMATION
  Report Type: Spontaneous
  Country: US (occurrence: None)
  Receive Date: 20241029
  Receipt Date: 20241029
  Transmission Date: 20250115
  Serious: Yes (Hospitalization)
  Sender: Public
  Company Number: None

PATIENT
  Sex: Female

DRUGS (12)
  1. XOLAIR [Suspect]
     Active Substance: OMALIZUMAB
     Indication: Asthma
     Route: 058
     Dates: start: 20240719
  2. XOLAIR [Suspect]
     Active Substance: OMALIZUMAB
  3. ACIDO LACTOB POW 1 BU/GM [Concomitant]
  4. AMITIZA CAP 24MCG [Concomitant]
  5. AMITRIPTYLIN TAB 50MG [Concomitant]
  6. ASPIRIN LOW TAB 81 MG EC [Concomitant]
  7. ATORVASTATIN [Concomitant]
     Active Substance: ATORVASTATIN
  8. CETIRIZINE HCL [Concomitant]
     Active Substance: CETIRIZINE HYDROCHLORIDE
  9. CRANBERRY TAB 400MG [Concomitant]
  10. CYANOCOBALAM INJ 1 000MCG [Concomitant]
  11. D-2000 MAXIMUM STRENGTH [Concomitant]
  12. DULOXETINE CAP 60MG [Concomitant]

REACTIONS (2)
  - Irritable bowel syndrome [None]
  - Intentional dose omission [None]
